FAERS Safety Report 10765565 (Version 2)
Quarter: 2015Q1

REPORT INFORMATION
  Report Type: Spontaneous
  Country: JP (occurrence: None)
  Receive Date: 20150203
  Receipt Date: 20150218
  Transmission Date: 20150721
  Serious: Yes (Hospitalization)
  Sender: FDA-Public Use
  Company Number: JP-20150010

PATIENT
  Age: 5 Decade
  Sex: Male

DRUGS (2)
  1. LIPIODOL ULTRA-FLUIDE [Suspect]
     Active Substance: ETHIODIZED OIL
     Indication: THERAPEUTIC EMBOLISATION
     Dosage: LESS THAN 1.5 ML (1 IN 1 D) INTRA-ARTERIAL
     Route: 013
     Dates: start: 20140303, end: 20140303
  2. NBCA (N-BUTYL 2-CYANOACRYLATE) [Concomitant]

REACTIONS (4)
  - Haemorrhage [None]
  - Product use issue [None]
  - Duodenitis [None]
  - Off label use [None]
